FAERS Safety Report 3749714 (Version 2)
Quarter: 2020Q3

REPORT INFORMATION
  Report Type: Report from Study
  Country: AU (occurrence: AU)
  Receive Date: 20020111
  Receipt Date: 20040910
  Transmission Date: 20201105
  Serious: Yes (Other)
  Sender: FDA-Public Use
  Company Number: APCDSS2001001343

PATIENT
  Age: 89 Year
  Sex: Male
  Weight: 72 kg

DRUGS (3)
  1. VITAMIN E [Concomitant]
     Active Substance: .ALPHA.-TOCOPHEROL
     Route: 049
  2. PLACEBO [Suspect]
     Active Substance: UNSPECIFIED INGREDIENT
     Route: 049
     Dates: start: 20010914, end: 20011005
  3. PLACEBO [Suspect]
     Active Substance: UNSPECIFIED INGREDIENT
     Route: 049
     Dates: start: 20010914, end: 20011005

REACTIONS (6)
  - Gastric cancer [None]
  - Lethargy [None]
  - Rash [None]
  - Weight decreased [None]
  - Autoimmune disorder [None]
  - Depression [Not Recovered/Not Resolved]

NARRATIVE: CASE EVENT DATE: 20010912
